FAERS Safety Report 11010684 (Version 1)
Quarter: 2015Q2

REPORT INFORMATION
  Report Type: Spontaneous
  Country: GB (occurrence: GB)
  Receive Date: 20150410
  Receipt Date: 20150410
  Transmission Date: 20150821
  Serious: Yes (Life-Threatening)
  Sender: FDA-Public Use
  Company Number: GB-TEVA-553384ACC

PATIENT
  Sex: Male

DRUGS (6)
  1. OLANZAPINE. [Suspect]
     Active Substance: OLANZAPINE
     Dosage: 30 MILLIGRAM DAILY;
  2. SODIUM VALPROATE [Concomitant]
     Active Substance: VALPROATE SODIUM
  3. INFLIXIMAB [Concomitant]
     Active Substance: INFLIXIMAB
  4. PROMETHAZINE [Concomitant]
     Active Substance: PROMETHAZINE\PROMETHAZINE HYDROCHLORIDE
     Dosage: NO MORE THAN 75MG A DAY
  5. VITAMIN B SUBSTANCES [Concomitant]
     Dosage: 3 DOSAGE FORMS DAILY;
  6. CLONAZEPAM. [Concomitant]
     Active Substance: CLONAZEPAM
     Dosage: 6 MILLIGRAM DAILY;

REACTIONS (1)
  - Functional gastrointestinal disorder [Not Recovered/Not Resolved]
